FAERS Safety Report 21793550 (Version 1)
Quarter: 2022Q4

REPORT INFORMATION
  Report Type: Spontaneous
  Country: CN (occurrence: CN)
  Receive Date: 20221229
  Receipt Date: 20221229
  Transmission Date: 20230113
  Serious: Yes (Hospitalization, Other)
  Sender: FDA-Public Use
  Company Number: CN-GLAXOSMITHKLINE-CNCH2022APC051200

PATIENT
  Age: 40 Year
  Sex: Female

DRUGS (17)
  1. DICLOFENAC SODIUM [Suspect]
     Active Substance: DICLOFENAC SODIUM
     Indication: Pyrexia
     Dosage: 75 MG, QD
     Route: 048
     Dates: start: 20221212, end: 20221216
  2. DEXAMETHASONE [Suspect]
     Active Substance: DEXAMETHASONE
     Indication: Erythema
     Dosage: UNK
     Route: 065
     Dates: start: 20221217
  3. DEXAMETHASONE [Suspect]
     Active Substance: DEXAMETHASONE
     Indication: Rash
  4. DEXAMETHASONE [Suspect]
     Active Substance: DEXAMETHASONE
     Indication: Pruritus
  5. IBUPROFEN [Suspect]
     Active Substance: IBUPROFEN
     Indication: Pyrexia
     Dosage: 0.2 G, TID
     Route: 048
     Dates: start: 20221212, end: 20221214
  6. CLINDAMYCIN [Suspect]
     Active Substance: CLINDAMYCIN
     Indication: Erythema
     Dosage: UNK
     Route: 065
     Dates: start: 20221217
  7. CLINDAMYCIN [Suspect]
     Active Substance: CLINDAMYCIN
     Indication: Rash
  8. CLINDAMYCIN [Suspect]
     Active Substance: CLINDAMYCIN
     Indication: Pruritus
  9. VITAMIN C [Suspect]
     Active Substance: ASCORBIC ACID
     Indication: Erythema
     Dosage: UNK
     Route: 065
     Dates: start: 20221217
  10. VITAMIN C [Suspect]
     Active Substance: ASCORBIC ACID
     Indication: Rash
  11. VITAMIN C [Suspect]
     Active Substance: ASCORBIC ACID
     Indication: Pruritus
  12. CALCIUM GLUCONATE [Suspect]
     Active Substance: CALCIUM GLUCONATE
     Indication: Erythema
     Dosage: UNK
     Route: 042
     Dates: start: 20221217
  13. CALCIUM GLUCONATE [Suspect]
     Active Substance: CALCIUM GLUCONATE
     Indication: Rash
  14. CALCIUM GLUCONATE [Suspect]
     Active Substance: CALCIUM GLUCONATE
     Indication: Pruritus
  15. EBASTINE [Suspect]
     Active Substance: EBASTINE
     Indication: Erythema
     Dosage: UNK
     Route: 048
     Dates: start: 20221217
  16. EBASTINE [Suspect]
     Active Substance: EBASTINE
     Indication: Rash
  17. EBASTINE [Suspect]
     Active Substance: EBASTINE
     Indication: Pruritus

REACTIONS (6)
  - Drug eruption [Recovering/Resolving]
  - Erythema [Recovering/Resolving]
  - Pruritus [Recovering/Resolving]
  - Rash [Recovering/Resolving]
  - Asthenia [Recovering/Resolving]
  - Product use in unapproved indication [Unknown]

NARRATIVE: CASE EVENT DATE: 20221201
